FAERS Safety Report 10078344 (Version 1)
Quarter: 2014Q2

REPORT INFORMATION
  Report Type: Spontaneous
  Country: US (occurrence: US)
  Receive Date: 20140415
  Receipt Date: 20140415
  Transmission Date: 20141212
  Serious: Yes (Hospitalization, Other)
  Sender: FDA-Public Use
  Company Number: US-ROCHE-1377709

PATIENT
  Age: 74 Year
  Sex: Female
  Weight: 67.19 kg

DRUGS (16)
  1. BONIVA [Suspect]
     Indication: PRODUCT USED FOR UNKNOWN INDICATION
     Route: 065
  2. HUMIRA [Suspect]
     Indication: CROHN^S DISEASE
     Dosage: 40MG 1 IN 2
     Route: 058
     Dates: start: 2010
  3. HUMIRA [Suspect]
     Dosage: LOADING DOSE 160MG
     Route: 058
     Dates: start: 20120526, end: 20120526
  4. HUMIRA [Suspect]
     Route: 058
     Dates: start: 201212
  5. HUMIRA [Suspect]
     Route: 058
     Dates: start: 201301, end: 201306
  6. HUMIRA [Suspect]
     Route: 058
     Dates: start: 201306
  7. FOSAMAX [Suspect]
     Indication: PRODUCT USED FOR UNKNOWN INDICATION
     Route: 065
  8. HYDROCHLOROTHIAZIDE [Concomitant]
  9. LISINOPRIL [Concomitant]
     Indication: HYPERTENSION
     Route: 065
  10. SYNTHROID [Concomitant]
     Route: 065
  11. ULTRAM [Concomitant]
     Route: 065
  12. PRILOSEC [Concomitant]
  13. XANAX [Concomitant]
     Dosage: AT BEDTIME
     Route: 065
  14. CLONIDINE [Concomitant]
     Indication: HYPERTENSION
     Route: 065
  15. AMLODIPINE [Concomitant]
     Indication: HYPERTENSION
     Route: 065
  16. TYLENOL [Concomitant]
     Indication: HEADACHE

REACTIONS (42)
  - Biliary tract disorder [Recovered/Resolved]
  - Liver injury [Unknown]
  - Female genital tract fistula [Unknown]
  - Fistula discharge [Unknown]
  - Malaise [Recovered/Resolved]
  - Feeling abnormal [Unknown]
  - Abasia [Recovered/Resolved]
  - Rotator cuff syndrome [Unknown]
  - Asthenia [Unknown]
  - Intestinal obstruction [Recovered/Resolved]
  - Fall [Unknown]
  - Cholecystitis [Recovered/Resolved]
  - Nausea [Recovered/Resolved]
  - Spinal fracture [Recovered/Resolved]
  - Cervical vertebral fracture [Recovered/Resolved]
  - Full blood count decreased [Unknown]
  - Hip fracture [Recovered/Resolved]
  - Female genital tract fistula [Unknown]
  - Crohn^s disease [Recovered/Resolved]
  - Abdominal pain [Recovered/Resolved]
  - Deep vein thrombosis [Unknown]
  - Procedural nausea [Recovered/Resolved]
  - Diarrhoea [Unknown]
  - Arthralgia [Unknown]
  - Dehydration [Unknown]
  - Drug ineffective [Unknown]
  - Sinusitis [Unknown]
  - Headache [Unknown]
  - Nasal congestion [Unknown]
  - Paranasal sinus hypersecretion [Unknown]
  - Insomnia [Unknown]
  - Pain [Unknown]
  - Neck pain [Unknown]
  - Back pain [Unknown]
  - Joint dislocation [Unknown]
  - Musculoskeletal pain [Unknown]
  - International normalised ratio decreased [Unknown]
  - Fatigue [Unknown]
  - Urinary tract infection [Unknown]
  - Injection site pain [Unknown]
  - Depressed mood [Unknown]
  - Medical device complication [Unknown]
